FAERS Safety Report 4434772-7 (Version None)
Quarter: 2004Q3

REPORT INFORMATION
  Report Type: 
  Country: None (occurrence: None)
  Receive Date: 20040726
  Receipt Date: 20040223
  Transmission Date: 20050211
  Serious: No
  Sender: FDA-Public Use
  Company Number: USA040260116

PATIENT
  Sex: Female

DRUGS (2)
  1. FORTEO [Suspect]
  2. CALCIUM [Concomitant]

REACTIONS (7)
  - BACK PAIN [None]
  - FEELING HOT [None]
  - FLUSHING [None]
  - INFLUENZA [None]
  - LIMB DISCOMFORT [None]
  - MUSCLE CRAMP [None]
  - PAIN IN EXTREMITY [None]
